FAERS Safety Report 21092800 (Version 1)
Quarter: 2022Q3

REPORT INFORMATION
  Report Type: Spontaneous
  Country: KR (occurrence: KR)
  Receive Date: 20220718
  Receipt Date: 20220718
  Transmission Date: 20221026
  Serious: Yes (Other)
  Sender: FDA-Public Use
  Company Number: KR-NOVARTISPH-NVSC2022KR160995

PATIENT
  Age: 67 Year
  Sex: Male

DRUGS (3)
  1. DIOVAN [Suspect]
     Active Substance: VALSARTAN
     Indication: Product used for unknown indication
     Dosage: 0.5 T, FOR 7 DAYS
     Route: 048
     Dates: start: 20220706
  2. DIOVAN [Suspect]
     Active Substance: VALSARTAN
     Dosage: 0.5T X 2
     Route: 048
  3. HYDROCHLOROTHIAZIDE\VALSARTAN [Suspect]
     Active Substance: HYDROCHLOROTHIAZIDE\VALSARTAN
     Indication: Product used for unknown indication
     Dosage: UNK, FOR 10 YEARS
     Route: 048

REACTIONS (4)
  - Arrhythmia [Unknown]
  - Blood pressure increased [Unknown]
  - Blood pressure decreased [Unknown]
  - Wrong technique in product usage process [Unknown]

NARRATIVE: CASE EVENT DATE: 20210601
